FAERS Safety Report 23627883 (Version 3)
Quarter: 2024Q2

REPORT INFORMATION
  Report Type: Report from Study
  Country: CA (occurrence: CA)
  Receive Date: 20240313
  Receipt Date: 20240605
  Transmission Date: 20240716
  Serious: Yes (Other)
  Sender: FDA-Public Use
  Company Number: CA-IPSEN Group, Research and Development-2024-03970

PATIENT
  Age: 78 Year
  Sex: Female

DRUGS (3)
  1. LANREOTIDE ACETATE [Suspect]
     Active Substance: LANREOTIDE ACETATE
     Indication: Gastroenteropancreatic neuroendocrine tumour disease
     Dosage: 120 MG Q 4 WEEKS DEEP SUBCUTANEOUS
     Route: 058
     Dates: start: 20230825
  2. TINZAPARIN [Concomitant]
     Active Substance: TINZAPARIN
  3. IRON [Concomitant]
     Active Substance: IRON

REACTIONS (1)
  - Bradycardia [Unknown]

NARRATIVE: CASE EVENT DATE: 20240310
